FAERS Safety Report 17277907 (Version 3)
Quarter: 2020Q2

REPORT INFORMATION
  Report Type: Other
  Country: PT (occurrence: PT)
  Receive Date: 20200116
  Receipt Date: 20200416
  Transmission Date: 20200713
  Serious: Yes (Life-Threatening, Hospitalization, Other)
  Sender: FDA-Public Use
  Company Number: PT-EMD SERONO-E2B_90074130

PATIENT
  Age: 63 Year
  Sex: Female

DRUGS (3)
  1. GLICLAZIDE [Suspect]
     Active Substance: GLICLAZIDE
     Dosage: 80 MG (12/12HR)
     Route: 065
  2. METFORMIN [Suspect]
     Active Substance: METFORMIN HYDROCHLORIDE
     Indication: DIABETES MELLITUS
     Route: 065
  3. GLICLAZIDE [Suspect]
     Active Substance: GLICLAZIDE
     Indication: DIABETES MELLITUS
     Route: 065

REACTIONS (15)
  - Hyperlactacidaemia [Unknown]
  - Respiratory failure [Unknown]
  - Hyperkalaemia [Unknown]
  - Diarrhoea [Unknown]
  - Acetonaemia [Unknown]
  - Metabolic acidosis [Unknown]
  - Off label use [Unknown]
  - Nausea [Unknown]
  - Psychomotor hyperactivity [Unknown]
  - Haemodynamic instability [Unknown]
  - Condition aggravated [Unknown]
  - Lactic acidosis [Unknown]
  - Vomiting [Unknown]
  - Diabetic ketoacidosis [Unknown]
  - Acute kidney injury [Unknown]
